FAERS Safety Report 11445684 (Version 1)
Quarter: 2015Q3

REPORT INFORMATION
  Report Type: Spontaneous
  Country: US (occurrence: None)
  Receive Date: 20150901
  Receipt Date: 20150901
  Transmission Date: 20151125
  Serious: Yes (Life-Threatening)
  Sender: FDA-Public Use
  Company Number: None

PATIENT
  Age: 81 Year
  Sex: Male
  Weight: 112 kg

DRUGS (8)
  1. CEFAZOLIN [Concomitant]
     Active Substance: CEFAZOLIN
  2. LACTATED RINGERS [Concomitant]
     Active Substance: CALCIUM CHLORIDE\POTASSIUM CHLORIDE\SODIUM CHLORIDE\SODIUM LACTATE
  3. FENTANYL. [Concomitant]
     Active Substance: FENTANYL
  4. BUPIVACAINE [Concomitant]
     Active Substance: BUPIVACAINE
  5. PROPOFOL. [Suspect]
     Active Substance: PROPOFOL
     Indication: SEDATIVE THERAPY
     Dosage: 50 MCG/KG/MIN  CONTINUOUS INFUSION INTRAVENOUS
     Route: 042
  6. LIDOCAINE 1% [Concomitant]
     Active Substance: LIDOCAINE
  7. ISOVUE [Concomitant]
     Active Substance: IOPAMIDOL
  8. MIDAZOLAM [Concomitant]
     Active Substance: MIDAZOLAM\MIDAZOLAM HYDROCHLORIDE

REACTIONS (1)
  - Cardiac arrest [None]

NARRATIVE: CASE EVENT DATE: 20150827
